FAERS Safety Report 24558812 (Version 1)
Quarter: 2024Q4

REPORT INFORMATION
  Report Type: Report from Study
  Country: US (occurrence: US)
  Receive Date: 20241029
  Receipt Date: 20241029
  Transmission Date: 20250114
  Serious: Yes (Hospitalization)
  Sender: ROCHE
  Company Number: US-ROCHE-10000114160

PATIENT
  Age: 68 Year
  Sex: Female
  Weight: 63.5 kg

DRUGS (1)
  1. OCREVUS [Suspect]
     Active Substance: OCRELIZUMAB
     Indication: Multiple sclerosis
     Route: 042
     Dates: start: 2019

REACTIONS (7)
  - Pneumonia [Recovered/Resolved]
  - Influenza [Recovered/Resolved]
  - Pharyngitis streptococcal [Recovered/Resolved]
  - Candida infection [Recovered/Resolved]
  - Vitamin B complex deficiency [Unknown]
  - Back pain [Not Recovered/Not Resolved]
  - Pain in extremity [Recovering/Resolving]

NARRATIVE: CASE EVENT DATE: 20240401
